FAERS Safety Report 18166172 (Version 1)
Quarter: 2020Q3

REPORT INFORMATION
  Report Type: Spontaneous
  Country: DE (occurrence: DE)
  Receive Date: 20200819
  Receipt Date: 20200819
  Transmission Date: 20201103
  Serious: Yes (Hospitalization)
  Sender: FDA-Public Use
  Company Number: DE-TEVA-2020-DE-1815484

PATIENT
  Age: 85 Year
  Sex: Female
  Weight: 56 kg

DRUGS (11)
  1. CHININ [Concomitant]
     Active Substance: QUININE HYDROCHLORIDE
     Dosage: 165.74 MILLIGRAM DAILY; 0?0?0?1,
     Route: 048
  2. SIMVASTATIN. [Concomitant]
     Active Substance: SIMVASTATIN
     Dosage: 60 MILLIGRAM DAILY; 0?0?1?0,
     Route: 048
  3. CITALOPRAM [Concomitant]
     Active Substance: CITALOPRAM HYDROBROMIDE
     Dosage: 20 MILLIGRAM DAILY; 1?0?0?0
     Route: 048
  4. BISOPROLOL [Suspect]
     Active Substance: BISOPROLOL
     Dosage: .5 DOSAGE FORMS DAILY; 5 MG, 0.5?0?0?0,
     Route: 048
  5. OPIPRAMOL [Suspect]
     Active Substance: OPIPRAMOL
     Dosage: 50 MILLIGRAM DAILY;
     Route: 048
  6. TORASEMID [Suspect]
     Active Substance: TORSEMIDE
     Dosage: 20 MILLIGRAM DAILY; 1?1?0?0, UNIT DOSE: 10 MG
     Route: 048
  7. GLYCOPYRRONIUMBROMID/INDACATEROL [Concomitant]
     Dosage: 1 DOSAGE FORMS DAILY; 43|85 MICROGRAM, 1?0?0?0,
     Route: 048
  8. SPIRONOLACTON [Suspect]
     Active Substance: SPIRONOLACTONE
     Dosage: .5 DOSAGE FORMS DAILY; 50 MG, 0.5?0?0?0,
     Route: 048
  9. COLECALCIFEROL (VITAMIN D) [Concomitant]
     Dosage: 1000 IU (INTERNATIONAL UNIT) DAILY; 1?0?0?0
     Route: 048
  10. VALSARTAN. [Concomitant]
     Active Substance: VALSARTAN
     Dosage: .5 DOSAGE FORMS DAILY; 40 MG, 0.5?0?0?0,
     Route: 048
  11. METAMIZOL [Concomitant]
     Active Substance: METAMIZOLE SODIUM
     Dosage: 1500 MILLIGRAM DAILY;  1?1?1?0, UNIT DOSE: 500 MG
     Route: 048

REACTIONS (2)
  - Orthopnoea [Unknown]
  - Dyspnoea [Unknown]
